FAERS Safety Report 6402929-1 (Version None)
Quarter: 2009Q4

REPORT INFORMATION
  Report Type: 
  Country: None (occurrence: None)
  Receive Date: 20091014
  Receipt Date: 20091014
  Transmission Date: 20100525
  Serious: No
  Sender: FDA-Public Use
  Company Number: None

PATIENT

DRUGS (2)
  1. BUPROPION HCL [Suspect]
     Indication: DEPRESSION
     Dosage: 150 MG 2 X DAILY
     Dates: start: 20090803, end: 20090921
  2. BUPROPION HCL [Suspect]
     Indication: SMOKING CESSATION THERAPY
     Dosage: 150 MG 2 X DAILY
     Dates: start: 20090803, end: 20090921

REACTIONS (11)
  - AGGRESSION [None]
  - AGITATION [None]
  - ANXIETY [None]
  - CONFUSIONAL STATE [None]
  - DELUSION [None]
  - DISTURBANCE IN ATTENTION [None]
  - DRY MOUTH [None]
  - HALLUCINATION [None]
  - IRRITABILITY [None]
  - MENTAL DISORDER [None]
  - MOOD ALTERED [None]
